FAERS Safety Report 4369676-1 (Version None)
Quarter: 2004Q2

REPORT INFORMATION
  Report Type: 
  Country: None (occurrence: None)
  Receive Date: 20040603
  Receipt Date: 20030616
  Transmission Date: 20050107
  Serious: Yes (Life-Threatening)
  Sender: FDA-Public Use
  Company Number: JP-ROCHE-340304

PATIENT
  Age: 11 Year
  Sex: Male
  Weight: 34 kg

DRUGS (7)
  1. TAMIFLU [Suspect]
     Dosage: DOSE FORM REPORTED AS CAPSULE.
     Route: 048
     Dates: start: 20030322, end: 20030323
  2. TOMIRON [Suspect]
     Dosage: DOSE FORM REPORTED AS TABLET.
     Route: 048
     Dates: start: 20030322, end: 20030323
  3. TOMIRON [Suspect]
     Route: 048
     Dates: start: 20030402
  4. ROKITAMYCIN [Concomitant]
     Dosage: FORMULATION REPORTED AS DRY SYRUP. TRADE NAME REPORTED AS RICAMYCIN.
     Route: 048
     Dates: start: 20030403, end: 20030404
  5. CHINESE HERB NOS [Concomitant]
     Dosage: HERB REPORTED AS MAOUBUSHISAISHINTOU.
     Dates: start: 20030322, end: 20030323
  6. MUCODYNE [Concomitant]
     Dates: start: 20030403, end: 20030404
  7. ACETAMINOPHEN [Concomitant]
     Dates: start: 20030403, end: 20040404

REACTIONS (11)
  - BLOOD AMYLASE INCREASED [None]
  - BLOOD IMMUNOGLOBULIN M INCREASED [None]
  - INAPPROPRIATE ANTIDIURETIC HORMONE SECRETION [None]
  - LYMPHADENOPATHY [None]
  - PAROTID GLAND ENLARGEMENT [None]
  - PHARYNGOLARYNGEAL PAIN [None]
  - PHOTOPHOBIA [None]
  - RESPIRATORY FAILURE [None]
  - STEVENS-JOHNSON SYNDROME [None]
  - TOXIC EPIDERMAL NECROLYSIS [None]
  - VIRAL INFECTION [None]
